FAERS Safety Report 6328387-3 (Version None)
Quarter: 2009Q3

REPORT INFORMATION
  Report Type: 
  Country: None (occurrence: None)
  Receive Date: 20090825
  Receipt Date: 20090401
  Transmission Date: 20100115
  Serious: No
  Sender: FDA-Public Use
  Company Number: US-ABBOTT-09P-163-0566235-00

PATIENT
  Sex: Female
  Weight: 74.91 kg

DRUGS (10)
  1. SYNTHROID [Suspect]
     Indication: DRUG USE FOR UNKNOWN INDICATION
     Dates: start: 20090203
  2. SYNTHROID [Suspect]
  3. LEVOTHYROXINE SODIUM [Suspect]
     Indication: DRUG USE FOR UNKNOWN INDICATION
     Dates: end: 20090203
  4. DICLOFENAC SOD ER [Concomitant]
     Indication: ANTIINFLAMMATORY THERAPY
  5. DAPSONE [Concomitant]
     Indication: COELIAC DISEASE
  6. EFFEXOR [Concomitant]
     Indication: DEPRESSION
  7. CLONAZEPAM [Concomitant]
     Indication: ANXIETY
  8. BONIVA [Concomitant]
     Indication: BONE DISORDER
  9. NIACIN [Concomitant]
     Indication: DRUG USE FOR UNKNOWN INDICATION
     Dates: start: 20090201
  10. VERAPAMIL [Concomitant]
     Indication: MIGRAINE

REACTIONS (3)
  - CHEST PAIN [None]
  - DYSPNOEA [None]
  - FATIGUE [None]
